FAERS Safety Report 5669655-8 (Version None)
Quarter: 2008Q1

REPORT INFORMATION
  Report Type: 
  Country: None (occurrence: None)
  Receive Date: 20080317
  Receipt Date: 20080303
  Transmission Date: 20080703
  Serious: Yes (Other)
  Sender: FDA-Public Use
  Company Number: BR-ROCHE-551391

PATIENT
  Sex: Male
  Weight: 80 kg

DRUGS (1)
  1. PEGASYS [Suspect]
     Indication: HEPATITIS C
     Dosage: TOTAL CUMULATIVE DOSE RECEIVED BY PATIENT 58 AMPOULES= 10440 MCG
     Route: 065
     Dates: start: 20040101, end: 20050201

REACTIONS (7)
  - ALOPECIA [None]
  - APPLICATION SITE NODULE [None]
  - DEPRESSION [None]
  - GLAUCOMA [None]
  - NEPHROLITHIASIS [None]
  - PANIC REACTION [None]
  - VARICOSE VEIN [None]
